FAERS Safety Report 10031271 (Version 2)
Quarter: 2014Q2

REPORT INFORMATION
  Report Type: Spontaneous
  Country: JP (occurrence: JP)
  Receive Date: 20140324
  Receipt Date: 20140408
  Transmission Date: 20141212
  Serious: Yes (Death)
  Sender: FDA-Public Use
  Company Number: JP-ROCHE-1364839

PATIENT
  Age: 22 Year
  Sex: Male

DRUGS (1)
  1. TAMIFLU [Suspect]
     Indication: PYREXIA
     Route: 048
     Dates: start: 20140301, end: 20140304

REACTIONS (1)
  - Completed suicide [Fatal]
